FAERS Safety Report 5466454-7 (Version None)
Quarter: 2007Q3

REPORT INFORMATION
  Report Type: 
  Country: None (occurrence: None)
  Receive Date: 20070820
  Receipt Date: 20070601
  Transmission Date: 20080115
  Serious: No
  Sender: FDA-Public Use
  Company Number: WAES 0706USA00305

PATIENT
  Age: 58 Year
  Sex: Female
  Weight: 146.9654 kg

DRUGS (7)
  1. JANUVIA [Suspect]
     Indication: TYPE 2 DIABETES MELLITUS
     Dosage: 100 MG/DAILY/PO
     Route: 048
     Dates: start: 20061201, end: 20070101
  2. AVANDIA [Concomitant]
  3. COZAAR [Concomitant]
  4. SYNTHROID [Concomitant]
  5. ZETIA [Concomitant]
  6. ZOLOFT [Concomitant]
  7. VITAMIN D (UNSPECIFIED) [Concomitant]

REACTIONS (1)
  - DRY EYE [None]
